FAERS Safety Report 8480989-4 (Version None)
Quarter: 2012Q3

REPORT INFORMATION
  Report Type: 
  Country: None (occurrence: None)
  Receive Date: 20120702
  Receipt Date: 20120621
  Transmission Date: 20120928
  Serious: Yes (Hospitalization)
  Sender: FDA-Public Use
  Company Number: ES-ELI_LILLY_AND_COMPANY-ES201206007148

PATIENT
  Sex: Male

DRUGS (1)
  1. FORTEO [Suspect]
     Dosage: UNK
     Route: 065
     Dates: start: 20111015

REACTIONS (2)
  - RENAL COLIC [None]
  - PAIN [None]
